FAERS Safety Report 18359930 (Version 1)
Quarter: 2020Q4

REPORT INFORMATION
  Report Type: Spontaneous
  Country: US (occurrence: US)
  Receive Date: 20201007
  Receipt Date: 20201007
  Transmission Date: 20210114
  Serious: Yes (Hospitalization, Other)
  Sender: FDA-Public Use
  Company Number: None

PATIENT
  Age: 67 Year
  Sex: Female

DRUGS (4)
  1. REPATHA [Suspect]
     Active Substance: EVOLOCUMAB
     Indication: HYPERLIPIDAEMIA
     Route: 058
     Dates: start: 20200410
  2. GLIPIZIDE. [Concomitant]
     Active Substance: GLIPIZIDE
  3. CANDESARTAN. [Concomitant]
     Active Substance: CANDESARTAN
  4. TRESIBA FLEX [Concomitant]

REACTIONS (6)
  - Coronary artery reocclusion [None]
  - Coronary artery bypass [None]
  - Vomiting [None]
  - Respiratory disorder [None]
  - Fatigue [None]
  - Chest discomfort [None]

NARRATIVE: CASE EVENT DATE: 20200915
